FAERS Safety Report 7799024-6 (Version None)
Quarter: 2011Q4

REPORT INFORMATION
  Report Type: 
  Country: None (occurrence: None)
  Receive Date: 20111005
  Receipt Date: 20111005
  Transmission Date: 20120403
  Serious: Yes (Other)
  Sender: FDA-Public Use
  Company Number: None

PATIENT
  Age: 83 Year
  Sex: Female
  Weight: 75.7507 kg

DRUGS (11)
  1. TOVIAZ [Suspect]
     Indication: URINARY INCONTINENCE
     Dosage: 8MG DAILY ORAL
     Route: 048
     Dates: start: 20101123, end: 20110405
  2. TOVIAZ [Suspect]
     Indication: URINARY INCONTINENCE
     Dosage: 8MG DAILY ORAL
     Route: 048
     Dates: start: 20110607, end: 20110821
  3. CITALOPRAM HYDROBROMIDE [Concomitant]
  4. BONIVA [Concomitant]
  5. DICYCLOMINE [Concomitant]
  6. DOXAZOSIN MESYLATE [Concomitant]
  7. LISINOPRIL [Concomitant]
  8. OMEPRAZOLE [Concomitant]
  9. SUCRALFATE [Concomitant]
  10. ACETAMINOPHEN AND HYDROCODONE BITARTRATE [Concomitant]
  11. BUPROPION HCL [Concomitant]

REACTIONS (1)
  - HEPATIC ENZYME INCREASED [None]
